FAERS Safety Report 6106939-3 (Version None)
Quarter: 2009Q1

REPORT INFORMATION
  Report Type: 
  Country: None (occurrence: None)
  Receive Date: 20090305
  Receipt Date: 20090305
  Transmission Date: 20090719
  Serious: No
  Sender: FDA-Public Use
  Company Number: None

PATIENT
  Sex: Female
  Weight: 84.369 kg

DRUGS (1)
  1. CODEINE PHOSPHATE AND ACETAMINOPHEN [Suspect]
     Indication: PAIN
     Dosage: ONCE QID PO
     Route: 048
     Dates: start: 20090216, end: 20090219

REACTIONS (3)
  - ABDOMINAL PAIN [None]
  - PRURITUS [None]
  - VOMITING [None]
